FAERS Safety Report 23240990 (Version 1)
Quarter: 2023Q4

REPORT INFORMATION
  Report Type: Spontaneous
  Country: US (occurrence: None)
  Receive Date: 20231128
  Receipt Date: 20231128
  Transmission Date: 20240110
  Serious: Yes (Death)
  Sender: FDA-Public Use
  Company Number: None

PATIENT
  Age: 29 Year
  Sex: Female

DRUGS (1)
  1. SOLIRIS [Suspect]
     Active Substance: ECULIZUMAB
     Indication: Neuromyelitis optica spectrum disorder
     Dosage: FREQUENCY : EVERY OTHER WEEK;?
     Route: 041
     Dates: start: 20230901

REACTIONS (12)
  - Brain death [None]
  - Gait disturbance [None]
  - Pruritus [None]
  - Hypertension [None]
  - Tachycardia [None]
  - Nausea [None]
  - Vomiting [None]
  - Mental status changes [None]
  - Meningitis aseptic [None]
  - Demyelination [None]
  - Encephalitis [None]
  - Myelitis [None]
